FAERS Safety Report 15175606 (Version 4)
Quarter: 2020Q1

REPORT INFORMATION
  Report Type: Spontaneous
  Country: CA (occurrence: CA)
  Receive Date: 20180720
  Receipt Date: 20200303
  Transmission Date: 20200409
  Serious: Yes (Life-Threatening, Hospitalization, Other)
  Sender: FDA-Public Use
  Company Number: CA-TEVA-2018-CA-926584

PATIENT
  Age: 87 Year
  Sex: Female
  Weight: 68 kg

DRUGS (23)
  1. NOVORAPID (10ML VIAL) [Concomitant]
  2. TAMIFLU [Concomitant]
     Active Substance: OSELTAMIVIR PHOSPHATE
  3. TYLENOL [Concomitant]
     Active Substance: ACETAMINOPHEN
  4. DONEPEZIL HYDROCHLORIDE. [Suspect]
     Active Substance: DONEPEZIL HYDROCHLORIDE
     Indication: DEMENTIA
     Route: 048
  5. FUROSEMIDE INJ USP [Concomitant]
     Active Substance: FUROSEMIDE
     Route: 065
  6. LOVENOX [Concomitant]
     Active Substance: ENOXAPARIN SODIUM
     Route: 065
  7. PANTOLOC [Concomitant]
     Active Substance: PANTOPRAZOLE SODIUM
  8. PIPERACILLIN/TAZOBACTAM [Concomitant]
     Active Substance: PIPERACILLIN SODIUM\TAZOBACTAM SODIUM
  9. FUROSEMIDE INJ USP [Concomitant]
     Active Substance: FUROSEMIDE
     Route: 030
  10. HYDRALAZINE [Concomitant]
     Active Substance: HYDRALAZINE HYDROCHLORIDE
  11. LOVENOX [Concomitant]
     Active Substance: ENOXAPARIN SODIUM
     Route: 058
  12. NOVORAPID (10ML VIAL) [Concomitant]
     Route: 058
  13. PROPOFOL. [Concomitant]
     Active Substance: PROPOFOL
  14. NOREPINEPHRINE BITARTRATE. [Concomitant]
     Active Substance: NOREPINEPHRINE BITARTRATE
     Route: 042
  15. PANTOLOC [Concomitant]
     Active Substance: PANTOPRAZOLE SODIUM
  16. TAMIFLU [Concomitant]
     Active Substance: OSELTAMIVIR PHOSPHATE
  17. KCL SOLUTION A 20% [Concomitant]
     Route: 048
  18. IPRATROPIUM/SALBUTAMOL [Concomitant]
     Active Substance: ALBUTEROL\IPRATROPIUM BROMIDE
  19. ZANTAC [Concomitant]
     Active Substance: RANITIDINE HYDROCHLORIDE
  20. DILAUDID [Concomitant]
     Active Substance: HYDROMORPHONE HYDROCHLORIDE
  21. FLOVENT [Concomitant]
     Active Substance: FLUTICASONE PROPIONATE
  22. GRAVOL [Concomitant]
     Active Substance: DIMENHYDRINATE
  23. LEVOPHED [Concomitant]
     Active Substance: NOREPINEPHRINE BITARTRATE
     Route: 042

REACTIONS (3)
  - Resuscitation [Recovered/Resolved]
  - Atrioventricular block complete [Recovered/Resolved]
  - Cardiac pacemaker insertion [Recovered/Resolved]
